FAERS Safety Report 14836445 (Version 2)
Quarter: 2018Q2

REPORT INFORMATION
  Report Type: Report from Study
  Country: JP (occurrence: JP)
  Receive Date: 20180502
  Receipt Date: 20180615
  Transmission Date: 20180711
  Serious: Yes (Other)
  Sender: FDA-Public Use
  Company Number: JP-AMGEN-JPNCT2016055271

PATIENT
  Age: 65 Year
  Sex: Male
  Weight: 49 kg

DRUGS (23)
  1. OXALIPLATIN. [Concomitant]
     Active Substance: OXALIPLATIN
     Dosage: 120 MG, Q2WEEKS
     Route: 041
     Dates: start: 20160722, end: 20160812
  2. CALCIUM LEVOFOLINATE [Concomitant]
     Active Substance: LEVOLEUCOVORIN CALCIUM
     Dosage: 300 MG, Q2WEEKS
     Route: 041
     Dates: start: 20160506, end: 20160624
  3. CALCIUM LEVOFOLINATE [Concomitant]
     Active Substance: LEVOLEUCOVORIN CALCIUM
     Dosage: 300 MG, Q2WEEKS
     Route: 041
     Dates: start: 20160722, end: 20160812
  4. FLUOROURACIL. [Concomitant]
     Active Substance: FLUOROURACIL
     Dosage: 3600 MG, Q2WK
     Route: 041
     Dates: start: 20160909, end: 20161216
  5. PANITUMUMAB [Suspect]
     Active Substance: PANITUMUMAB
     Dosage: 4.8 MG/KG, Q2WK
     Route: 041
     Dates: start: 20160812, end: 20160812
  6. CALCIUM LEVOFOLINATE [Concomitant]
     Active Substance: LEVOLEUCOVORIN CALCIUM
     Indication: COLON CANCER
     Dosage: 300 MG, Q2WEEKS
     Route: 041
     Dates: start: 20160219, end: 20160408
  7. FLUOROURACIL. [Concomitant]
     Active Substance: FLUOROURACIL
     Dosage: 600 MG, Q2WK
     Route: 040
     Dates: start: 20160909, end: 20161216
  8. FLUOROURACIL. [Concomitant]
     Active Substance: FLUOROURACIL
     Dosage: 3600 MG, Q2WEEKS
     Route: 041
     Dates: start: 20160506, end: 20160624
  9. PANITUMUMAB [Suspect]
     Active Substance: PANITUMUMAB
     Dosage: 290 MG, Q2WK
     Route: 041
     Dates: start: 20160506, end: 20160624
  10. OXALIPLATIN. [Concomitant]
     Active Substance: OXALIPLATIN
     Indication: COLON CANCER
     Dosage: 120 MG, Q2WEEKS
     Route: 041
     Dates: start: 20160219, end: 20160408
  11. OXALIPLATIN. [Concomitant]
     Active Substance: OXALIPLATIN
     Dosage: 120 MG, Q2WEEKS
     Route: 041
     Dates: start: 20160506, end: 20160624
  12. OXALIPLATIN. [Concomitant]
     Active Substance: OXALIPLATIN
     Dosage: 120 MG, Q2WEEKS
     Route: 041
     Dates: start: 20160909, end: 20161216
  13. FLUOROURACIL. [Concomitant]
     Active Substance: FLUOROURACIL
     Indication: COLON CANCER
     Dosage: 600 MG, Q2WK
     Route: 040
     Dates: start: 20160219, end: 20160408
  14. FLUOROURACIL. [Concomitant]
     Active Substance: FLUOROURACIL
     Dosage: 3600 MG, Q2WK
     Route: 041
     Dates: start: 20160722, end: 20160812
  15. FLUOROURACIL. [Concomitant]
     Active Substance: FLUOROURACIL
     Dosage: UNK
     Route: 042
     Dates: start: 20170113, end: 20180105
  16. PANITUMUMAB [Suspect]
     Active Substance: PANITUMUMAB
     Indication: COLON CANCER
     Dosage: 290 MG, Q2WK
     Route: 041
     Dates: start: 20160219, end: 20160408
  17. PANITUMUMAB [Suspect]
     Active Substance: PANITUMUMAB
     Dosage: 4.8 MG/KG, Q2WK
     Route: 041
     Dates: start: 20160909, end: 20160923
  18. FLUOROURACIL. [Concomitant]
     Active Substance: FLUOROURACIL
     Dosage: 600 MG, Q2WK
     Route: 040
     Dates: start: 20160722, end: 20160812
  19. PANITUMUMAB [Suspect]
     Active Substance: PANITUMUMAB
     Dosage: UNK UNK, Q2WK
     Route: 041
     Dates: start: 20160828, end: 20161125
  20. CALCIUM LEVOFOLINATE [Concomitant]
     Active Substance: LEVOLEUCOVORIN CALCIUM
     Dosage: 300 MG, Q2WEEKS
     Route: 041
     Dates: start: 20160909, end: 20161216
  21. FLUOROURACIL. [Concomitant]
     Active Substance: FLUOROURACIL
     Dosage: 3600 MG, Q2WEEKS
     Route: 041
     Dates: start: 20160219, end: 20160408
  22. FLUOROURACIL. [Concomitant]
     Active Substance: FLUOROURACIL
     Dosage: 600 MG, Q2WK
     Route: 040
     Dates: start: 20160506, end: 20160624
  23. PANITUMUMAB [Suspect]
     Active Substance: PANITUMUMAB
     Dosage: 290 MG, Q2WK
     Route: 041
     Dates: start: 20160722, end: 20160722

REACTIONS (25)
  - Hypokalaemia [Not Recovered/Not Resolved]
  - Dry skin [Recovered/Resolved]
  - Pyrexia [Recovered/Resolved]
  - Anaemia [Not Recovered/Not Resolved]
  - White blood cell count decreased [Recovered/Resolved]
  - Alanine aminotransferase increased [Not Recovered/Not Resolved]
  - Dysgeusia [Not Recovered/Not Resolved]
  - White blood cell count decreased [Recovered/Resolved]
  - Hypomagnesaemia [Recovered/Resolved]
  - Paronychia [Recovered/Resolved]
  - Dry skin [Recovering/Resolving]
  - Oedema peripheral [Recovering/Resolving]
  - Peripheral sensory neuropathy [Unknown]
  - Diarrhoea [Recovering/Resolving]
  - Dry skin [Unknown]
  - Blood creatine phosphokinase increased [Not Recovered/Not Resolved]
  - Platelet count decreased [Unknown]
  - Dermatitis acneiform [Not Recovered/Not Resolved]
  - Peripheral sensory neuropathy [Recovered/Resolved]
  - Neutrophil count decreased [Recovered/Resolved]
  - Aspartate aminotransferase increased [Not Recovered/Not Resolved]
  - Neutrophil count decreased [Recovered/Resolved]
  - Hyponatraemia [Recovered/Resolved]
  - Platelet count decreased [Recovered/Resolved]
  - Hypomagnesaemia [Unknown]
